FAERS Safety Report 4374319-7 (Version None)
Quarter: 2004Q2

REPORT INFORMATION
  Report Type: 
  Country: None (occurrence: None)
  Receive Date: 20040608
  Receipt Date: 20040608
  Transmission Date: 20050107
  Serious: No
  Sender: FDA-Public Use
  Company Number: None

PATIENT
  Age: 52 Year
  Sex: Male
  Weight: 122 kg

DRUGS (1)
  1. PERSANTINE [Suspect]

REACTIONS (5)
  - AGITATION [None]
  - ANXIETY [None]
  - COUGH [None]
  - FEELING HOT [None]
  - WHEEZING [None]
